FAERS Safety Report 4890445-8 (Version None)
Quarter: 2005Q4

REPORT INFORMATION
  Report Type: 
  Country: None (occurrence: None)
  Receive Date: 20051216
  Receipt Date: 20051006
  Transmission Date: 20060501
  Serious: No
  Sender: FDA-Public Use
  Company Number: BDI-007635

PATIENT
  Age: 66 Year
  Sex: Male
  Weight: 89 kg

DRUGS (5)
  1. MULTIHANCE [Suspect]
     Indication: HEADACHE
     Dosage: 19 ML ONCE IV
     Route: 042
     Dates: start: 20051003, end: 20051003
  2. MULTIHANCE [Suspect]
     Indication: NUCLEAR MAGNETIC RESONANCE IMAGING
     Dosage: 19 ML ONCE IV
     Route: 042
     Dates: start: 20051003, end: 20051003
  3. PRAZOSIN [Concomitant]
  4. COUMADIN [Concomitant]
  5. AVALIDE [Concomitant]

REACTIONS (1)
  - NAUSEA [None]
